FAERS Safety Report 9219990 (Version 2)
Quarter: 2013Q2

REPORT INFORMATION
  Report Type: Report from Study
  Country: GB (occurrence: GB)
  Receive Date: 20130409
  Receipt Date: 20130606
  Transmission Date: 20140414
  Serious: Yes (Other)
  Sender: FDA-Public Use
  Company Number: GB-ROCHE-1210260

PATIENT
  Sex: Male

DRUGS (4)
  1. ALTEPLASE [Suspect]
     Indication: HYDROCEPHALUS
     Dosage: INTRAVENTRICULAR ROUTE
     Route: 065
  2. ALTEPLASE [Suspect]
     Indication: OFF LABEL USE
  3. VANCOMYCIN [Concomitant]
     Route: 065
  4. GENTAMICIN [Concomitant]
     Dosage: STRENGHT 10 MG/500ML, 20 ML/KG DAILY DOSE PER HOUR
     Route: 065

REACTIONS (2)
  - Thrombocytopenia [Unknown]
  - Intraventricular haemorrhage [Unknown]
